FAERS Safety Report 7428532-2 (Version None)
Quarter: 2011Q2

REPORT INFORMATION
  Report Type: 
  Country: None (occurrence: None)
  Receive Date: 20110421
  Receipt Date: 20110413
  Transmission Date: 20111010
  Serious: Yes (Hospitalization)
  Sender: FDA-Public Use
  Company Number: US-B.I. PHARMACEUTICALS,INC./RIDGEFIELD-2011-BP-06140BP

PATIENT
  Age: 53 Year
  Sex: Male

DRUGS (7)
  1. LASIX [Concomitant]
     Dosage: 40 MG
     Route: 048
     Dates: start: 20110112
  2. LISINOPRIL [Concomitant]
     Dosage: 40 MG
     Route: 048
     Dates: start: 20110317
  3. NORVASC [Concomitant]
     Dosage: 5 MG
     Route: 048
     Dates: start: 20110112
  4. PRADAXA [Suspect]
     Indication: ATRIAL FIBRILLATION
     Dosage: 300 MG
     Route: 048
  5. ASPIRIN [Concomitant]
     Dosage: 325 MG
     Route: 048
     Dates: start: 20110317
  6. METOPROLOL TARTRATE [Concomitant]
     Route: 048
     Dates: start: 20110215
  7. MULTAQ [Concomitant]
     Dosage: 800 MG
     Route: 048

REACTIONS (5)
  - CEREBROVASCULAR ACCIDENT [None]
  - OEDEMA PERIPHERAL [None]
  - LIMB DISCOMFORT [None]
  - WEIGHT DECREASED [None]
  - DYSPNOEA [None]
